FAERS Safety Report 12285283 (Version 1)
Quarter: 2016Q2

REPORT INFORMATION
  Report Type: Report from Study
  Country: BR (occurrence: BR)
  Receive Date: 20160420
  Receipt Date: 20160420
  Transmission Date: 20160815
  Serious: No
  Sender: FDA-Public Use
  Company Number: PHHY2016BR052629

PATIENT
  Sex: Male
  Weight: 83 kg

DRUGS (1)
  1. TASIGNA [Suspect]
     Active Substance: NILOTINIB
     Indication: CHRONIC MYELOID LEUKAEMIA
     Dosage: 2 DF OF 200 MG, BID (2 CAPSULES OF 200MG IN THE MORNING, AND 2 CAPSULES OF 200MG IN THE AFTERNOON)
     Route: 048
     Dates: start: 2015

REACTIONS (1)
  - Inappropriate schedule of drug administration [Unknown]
